FAERS Safety Report 11767145 (Version 1)
Quarter: 2015Q4

REPORT INFORMATION
  Report Type: Spontaneous
  Country: US (occurrence: US)
  Receive Date: 20151123
  Receipt Date: 20151123
  Transmission Date: 20160304
  Serious: Yes (Other)
  Sender: FDA-Public Use
  Company Number: US-ROCHE-1663285

PATIENT
  Age: 21 Year
  Sex: Female

DRUGS (1)
  1. XOLAIR [Suspect]
     Active Substance: OMALIZUMAB
     Indication: ASTHMA
     Route: 058
     Dates: start: 20151029, end: 20151116

REACTIONS (8)
  - Oral pruritus [Unknown]
  - Throat irritation [Unknown]
  - Oral discomfort [Unknown]
  - Pain [Unknown]
  - Urticaria [Unknown]
  - Throat tightness [Unknown]
  - Nasal discomfort [Unknown]
  - Nasal pruritus [Unknown]

NARRATIVE: CASE EVENT DATE: 20151116
